FAERS Safety Report 9266244 (Version 1)
Quarter: 2013Q2

REPORT INFORMATION
  Report Type: Report from Study
  Country: US (occurrence: US)
  Receive Date: 20130502
  Receipt Date: 20130502
  Transmission Date: 20140414
  Serious: Yes (Other)
  Sender: FDA-Public Use
  Company Number: US-ROCHE-1220292

PATIENT
  Sex: Male
  Weight: 120 kg

DRUGS (2)
  1. PEGASYS [Suspect]
     Indication: HEPATITIS C
     Route: 058
     Dates: start: 20130105, end: 20130105
  2. PEGASYS [Suspect]
     Route: 058

REACTIONS (1)
  - Renal failure [Unknown]
